FAERS Safety Report 9467832 (Version 6)
Quarter: 2014Q1

REPORT INFORMATION
  Report Type: Spontaneous
  Country: US (occurrence: US)
  Receive Date: 20130821
  Receipt Date: 20140303
  Transmission Date: 20141002
  Serious: Yes (Hospitalization, Disabling, Other)
  Sender: FDA-Public Use
  Company Number: US-009507513-1308USA005786

PATIENT
  Sex: Female

DRUGS (6)
  1. FOSAMAX [Suspect]
     Indication: OSTEOPOROSIS
     Dosage: 10 MG, UNK
     Route: 048
     Dates: start: 19960813, end: 200110
  2. FOSAMAX [Suspect]
     Dosage: 70 MG, QW
     Route: 048
     Dates: start: 200110, end: 20070905
  3. FOSAMAX [Suspect]
     Dosage: UNK
     Route: 048
     Dates: start: 20000410, end: 200805
  4. ALENDRONATE SODIUM [Suspect]
     Indication: OSTEOPOROSIS
     Dosage: 70 MG, UNK
     Route: 048
  5. CYANOCOBALAMIN [Concomitant]
     Dosage: 1 SHOT EVERY MONTH
     Route: 051
     Dates: start: 2000
  6. IRON (UNSPECIFIED) [Concomitant]
     Dosage: 150 MG, QD
     Dates: start: 2000

REACTIONS (6)
  - Femur fracture [Recovered/Resolved]
  - Intramedullary rod insertion [Unknown]
  - Diabetes mellitus [Unknown]
  - Hypertension [Unknown]
  - Pelvic fracture [Unknown]
  - Bursitis [Unknown]
